FAERS Safety Report 18772219 (Version 1)
Quarter: 2021Q1

REPORT INFORMATION
  Report Type: Spontaneous
  Country: US (occurrence: US)
  Receive Date: 20210121
  Receipt Date: 20210121
  Transmission Date: 20210419
  Serious: No
  Sender: FDA-Public Use
  Company Number: US-PERRIGO-20US009880

PATIENT
  Age: 71 Year
  Sex: Female
  Weight: 49.89 kg

DRUGS (3)
  1. METHENAMINE [Concomitant]
     Active Substance: METHENAMINE
     Indication: PROPHYLAXIS
     Dosage: UNK
     Route: 065
     Dates: start: 2017
  2. CICLOPIROX OLAMINE. [Suspect]
     Active Substance: CICLOPIROX OLAMINE
     Indication: ONYCHOMYCOSIS
     Dosage: SMALL AMOUNT, BID
     Route: 061
     Dates: start: 202002, end: 2020
  3. CICLOPIROX OLAMINE. [Suspect]
     Active Substance: CICLOPIROX OLAMINE
     Dosage: SMALL AMOUNT, BID
     Route: 061
     Dates: start: 202002

REACTIONS (1)
  - Drug ineffective for unapproved indication [Unknown]

NARRATIVE: CASE EVENT DATE: 202002
